FAERS Safety Report 7527006-8 (Version None)
Quarter: 2011Q2

REPORT INFORMATION
  Report Type: 
  Country: None (occurrence: None)
  Receive Date: 20110606
  Receipt Date: 20110519
  Transmission Date: 20111010
  Serious: Yes (Hospitalization, Other)
  Sender: FDA-Public Use
  Company Number: HU-AMGEN-HUNCT2010008451

PATIENT
  Age: 77 Year
  Sex: Female

DRUGS (13)
  1. CAVINTON [Concomitant]
     Dosage: UNK UNK, Q8H
     Route: 048
     Dates: start: 19800101
  2. DENOSUMAB [Suspect]
     Indication: OSTEOPOROSIS POSTMENOPAUSAL
     Dosage: 60 MG, Q6MO
     Route: 058
     Dates: start: 20080306, end: 20100909
  3. NITROMINT [Concomitant]
     Dosage: UNK UNK, Q12H
     Route: 048
     Dates: start: 20090330
  4. SIMVACOL [Concomitant]
     Dosage: 20 MG, UNK
     Route: 048
     Dates: start: 20050420
  5. DONALGIN [Concomitant]
     Dosage: UNK UNK, TID
     Route: 048
     Dates: start: 20100402
  6. DUOPRIL [Concomitant]
     Dosage: UNK UNK, QD
     Route: 048
     Dates: start: 20050101
  7. KALDYUM [Concomitant]
     Indication: CARDIAC FAILURE
     Dosage: 600 MG, 2 TIMES/WK
     Route: 048
     Dates: start: 20080814
  8. CORDAFLEX [Concomitant]
     Dosage: UNK UNK, BID
     Route: 048
     Dates: start: 20090330
  9. VOLTAREN [Concomitant]
     Dosage: UNK UNK, PRN
     Route: 048
     Dates: start: 20090330
  10. ALGOPYRIN [Concomitant]
     Dosage: 20 MG, PRN
     Dates: start: 20090330
  11. ASPIRIN [Concomitant]
     Dosage: UNK MG, UNK
     Route: 048
     Dates: start: 20050419
  12. FUROSEMIDE [Concomitant]
     Dosage: UNK UNK, 2 TIMES/WK
     Route: 048
     Dates: start: 20080814
  13. CALCICHEW D3 [Concomitant]
     Indication: OSTEOPOROSIS
     Dosage: UNK UNK, Q12H
     Dates: start: 20090312

REACTIONS (2)
  - OSTEOMYELITIS [None]
  - OSTEONECROSIS OF JAW [None]
